FAERS Safety Report 8443749-6 (Version None)
Quarter: 2012Q2

REPORT INFORMATION
  Report Type: 
  Country: None (occurrence: None)
  Receive Date: 20120618
  Receipt Date: 20120606
  Transmission Date: 20120825
  Serious: Yes (Other)
  Sender: FDA-Public Use
  Company Number: GR-ELI_LILLY_AND_COMPANY-GR201205010013

PATIENT
  Age: 63 Year
  Sex: Female
  Weight: 95 kg

DRUGS (4)
  1. ATACAND [Concomitant]
     Indication: HYPERTENSION
     Dosage: 16 MG, QD
     Route: 048
     Dates: start: 20040101
  2. CYMBALTA [Suspect]
     Dosage: 60 MG, QD
     Dates: start: 20120412, end: 20120422
  3. SALOSPIR [Concomitant]
     Indication: PROPHYLAXIS
     Dosage: 100 MG, QD
     Route: 048
     Dates: start: 20070101
  4. CYMBALTA [Suspect]
     Indication: NEURALGIA
     Dosage: 30 MG, QD
     Route: 048
     Dates: start: 20120405, end: 20120411

REACTIONS (3)
  - OFF LABEL USE [None]
  - STOMATITIS [None]
  - DRY MOUTH [None]
